FAERS Safety Report 7316319-0 (Version None)
Quarter: 2011Q1

REPORT INFORMATION
  Report Type: 
  Country: None (occurrence: None)
  Receive Date: 20110225
  Receipt Date: 20110218
  Transmission Date: 20110831
  Serious: Yes (Other)
  Sender: FDA-Public Use
  Company Number: US-US-EMD SERONO, INC.-7025000

PATIENT
  Sex: Female
  Weight: 62 kg

DRUGS (8)
  1. REBIF [Suspect]
     Route: 058
     Dates: start: 20100101, end: 20101129
  2. CIPROFLOXACIN [Concomitant]
     Dates: start: 20101022
  3. REBIF [Suspect]
     Indication: MULTIPLE SCLEROSIS
     Route: 058
     Dates: start: 20101022, end: 20100101
  4. TYLENOL [Concomitant]
     Indication: PREMEDICATION
  5. CITALOPRAM HYDROBROMIDE [Concomitant]
     Dates: start: 20101129
  6. REBIF [Suspect]
     Route: 058
     Dates: start: 20101215
  7. TEGRETAL XR EXTENDED RELEASE 12 HOUR [Concomitant]
     Dates: start: 20101129
  8. TEGRETAL XR EXTENDED RELEASE 12 HOUR [Concomitant]
     Indication: CONVULSION
     Dates: start: 20101129

REACTIONS (4)
  - MUSCULOSKELETAL STIFFNESS [None]
  - INJECTION SITE ERYTHEMA [None]
  - INFLUENZA LIKE ILLNESS [None]
  - EPILEPSY [None]
